FAERS Safety Report 10665879 (Version 1)
Quarter: 2014Q4

REPORT INFORMATION
  Report Type: Spontaneous
  Country: US (occurrence: US)
  Receive Date: 20141219
  Receipt Date: 20141219
  Transmission Date: 20150529
  Serious: Yes (Other)
  Sender: FDA-Public Use
  Company Number: US-ELI_LILLY_AND_COMPANY-US201412005669

PATIENT
  Age: 44 Year
  Sex: Female

DRUGS (2)
  1. HUMALOG [Suspect]
     Active Substance: INSULIN LISPRO
     Indication: PRODUCT USED FOR UNKNOWN INDICATION
     Dosage: UNK
     Route: 058
  2. LEVEMIR [Concomitant]
     Active Substance: INSULIN DETEMIR
     Dosage: UNK

REACTIONS (5)
  - Blood glucose increased [Unknown]
  - Dizziness [Unknown]
  - Musculoskeletal chest pain [Unknown]
  - Paraesthesia oral [Unknown]
  - Dysarthria [Unknown]

NARRATIVE: CASE EVENT DATE: 20141209
